FAERS Safety Report 10245139 (Version 1)
Quarter: 2014Q2

REPORT INFORMATION
  Report Type: Spontaneous
  Country: US (occurrence: US)
  Receive Date: 20140618
  Receipt Date: 20140618
  Transmission Date: 20141212
  Serious: No
  Sender: FDA-Public Use
  Company Number: US-TEVA-483377USA

PATIENT
  Sex: Female
  Weight: 102.15 kg

DRUGS (3)
  1. QNASL [Suspect]
     Indication: UPPER-AIRWAY COUGH SYNDROME
     Dates: start: 20140513
  2. CLARITIN [Concomitant]
     Indication: UPPER-AIRWAY COUGH SYNDROME
  3. CORTISONE [Concomitant]
     Indication: ARTHROPATHY

REACTIONS (10)
  - Headache [Unknown]
  - Nasal dryness [Unknown]
  - Pain in extremity [Unknown]
  - Gait disturbance [Unknown]
  - Weight bearing difficulty [Unknown]
  - Peripheral swelling [Unknown]
  - Contusion [Unknown]
  - Feeling hot [Unknown]
  - Erythema [Unknown]
  - Fall [Unknown]
